FAERS Safety Report 21739126 (Version 1)
Quarter: 2022Q4

REPORT INFORMATION
  Report Type: Spontaneous
  Country: US (occurrence: None)
  Receive Date: 20221215
  Receipt Date: 20221215
  Transmission Date: 20230113
  Serious: No
  Sender: FDA-Public Use
  Company Number: None

PATIENT
  Age: 77 Year
  Sex: Male

DRUGS (2)
  1. IOHEXOL [Suspect]
     Active Substance: IOHEXOL
     Indication: Computerised tomogram
     Dosage: FREQUENCY : ONCE;?
     Route: 042
     Dates: start: 20221030, end: 20221030
  2. IOHEXOL [Suspect]
     Active Substance: IOHEXOL
     Indication: Scan with contrast

REACTIONS (2)
  - Rash [None]
  - Erythema multiforme [None]

NARRATIVE: CASE EVENT DATE: 20221030
